FAERS Safety Report 7632405-X (Version None)
Quarter: 2011Q3

REPORT INFORMATION
  Report Type: 
  Country: None (occurrence: None)
  Receive Date: 20110725
  Receipt Date: 20100825
  Transmission Date: 20111222
  Serious: No
  Sender: FDA-Public Use
  Company Number: US-BRISTOL-MYERS SQUIBB COMPANY-15255557

PATIENT
  Age: 78 Year
  Sex: Female

DRUGS (4)
  1. PLAVIX [Suspect]
     Dosage: DURATION: 1 WEEK
     Dates: start: 20100801
  2. MAGNESIUM [Concomitant]
  3. COUMADIN [Suspect]
     Dosage: DURATION: 1 WEEK
     Dates: start: 20100801
  4. THYROID TAB [Concomitant]

REACTIONS (1)
  - CONTUSION [None]
